FAERS Safety Report 8443411-X (Version None)
Quarter: 2012Q2

REPORT INFORMATION
  Report Type: 
  Country: None (occurrence: None)
  Receive Date: 20120612
  Receipt Date: 20120612
  Transmission Date: 20120825
  Serious: Yes (Other)
  Sender: FDA-Public Use
  Company Number: None

PATIENT
  Sex: Female
  Weight: 79.3795 kg

DRUGS (2)
  1. PRIMIDONE [Suspect]
     Indication: ESSENTIAL TREMOR
     Dosage: 50 MG QID
     Dates: start: 20110501
  2. PRIMIDONE [Suspect]
     Indication: ESSENTIAL TREMOR
     Dosage: 50 MG QID
     Dates: start: 20110701

REACTIONS (1)
  - RASH [None]
